FAERS Safety Report 7929901-4 (Version None)
Quarter: 2011Q4

REPORT INFORMATION
  Report Type: 
  Country: None (occurrence: None)
  Receive Date: 20111121
  Receipt Date: 20111116
  Transmission Date: 20120403
  Serious: Yes (Other)
  Sender: FDA-Public Use
  Company Number: US-PFIZER INC-2011129735

PATIENT
  Sex: Male

DRUGS (5)
  1. LEXAPRO [Concomitant]
     Indication: DEPRESSION
     Dosage: UNK
     Dates: start: 20060801, end: 20080101
  2. VICODIN [Concomitant]
     Indication: PAIN
     Dosage: UNK
     Dates: start: 20060101
  3. VALTREX [Concomitant]
     Indication: ORAL HERPES
     Dosage: UNK
     Dates: start: 20010101
  4. LEXAPRO [Concomitant]
     Indication: ANXIETY
  5. CHANTIX [Suspect]
     Indication: SMOKING CESSATION THERAPY
     Dosage: UNK
     Dates: start: 20070226, end: 20070301

REACTIONS (3)
  - DEPRESSION [None]
  - ANXIETY [None]
  - SUICIDAL IDEATION [None]
